FAERS Safety Report 6129768-3 (Version None)
Quarter: 2009Q1

REPORT INFORMATION
  Report Type: 
  Country: None (occurrence: None)
  Receive Date: 20090324
  Receipt Date: 20090311
  Transmission Date: 20090719
  Serious: Yes (Hospitalization, Other)
  Sender: FDA-Public Use
  Company Number: US-AVENTIS-200615425US

PATIENT
  Sex: Female

DRUGS (3)
  1. KETEK [Suspect]
     Indication: PHARYNGITIS
     Dosage: DOSE: UNK
     Dates: start: 20060531, end: 20060602
  2. TYLENOL W/ CODEINE [Concomitant]
     Dosage: DOSE: UNK
  3. GUAIFENESIN/PHENYLEPHRINE/DEXTROMETHORPHAN [Concomitant]
     Dosage: DOSE: UNK

REACTIONS (18)
  - ABDOMINAL PAIN [None]
  - ANXIETY [None]
  - ASPARTATE AMINOTRANSFERASE INCREASED [None]
  - CHEST PAIN [None]
  - CONDITION AGGRAVATED [None]
  - DIARRHOEA [None]
  - DIPLOPIA [None]
  - DYSPNOEA [None]
  - EATING DISORDER [None]
  - HEPATITIS [None]
  - LIPASE INCREASED [None]
  - NAUSEA [None]
  - PAIN [None]
  - PANCREATIC ENZYMES INCREASED [None]
  - PANCREATITIS [None]
  - POST PROCEDURAL COMPLICATION [None]
  - SPHINCTER OF ODDI DYSFUNCTION [None]
  - WEIGHT DECREASED [None]
